FAERS Safety Report 4461633-X (Version None)
Quarter: 2004Q3

REPORT INFORMATION
  Report Type: 
  Country: None (occurrence: None)
  Receive Date: 20040921
  Receipt Date: 20040915
  Transmission Date: 20050211
  Serious: Yes (Other)
  Sender: FDA-Public Use
  Company Number: 200410274BBE

PATIENT
  Age: 32 Year
  Sex: Male

DRUGS (15)
  1. KOATE [Suspect]
     Indication: FACTOR VIII DEFICIENCY
     Dates: start: 19840101
  2. HEMOFIL [Suspect]
     Indication: FACTOR VIII DEFICIENCY
     Dates: start: 19790101
  3. HEMOFIL [Suspect]
     Indication: FACTOR VIII DEFICIENCY
     Dates: start: 19800101
  4. HEMOFIL [Suspect]
     Indication: FACTOR VIII DEFICIENCY
     Dates: start: 19810101
  5. FACTORATE  (FACTOR VIII (ANTIHAEMOPHILIC FACTOR)) [Suspect]
     Indication: FACTOR VIII DEFICIENCY
     Dates: start: 19810101
  6. FACTORATE  (FACTOR VIII (ANTIHAEMOPHILIC FACTOR)) [Suspect]
     Indication: FACTOR VIII DEFICIENCY
     Dates: start: 19820101
  7. KRYOBULIN  (FACTOR VIII (ANTIHAEMOPHILIC FACTOR)) [Suspect]
     Indication: FACTOR VIII DEFICIENCY
     Dates: start: 19810101
  8. KRYOBULIN  (FACTOR VIII (ANTIHAEMOPHILIC FACTOR)) [Suspect]
     Indication: FACTOR VIII DEFICIENCY
     Dates: start: 19820101
  9. PROFILATE [Suspect]
     Indication: FACTOR VIII DEFICIENCY
     Dates: start: 19820101
  10. PROFILATE [Suspect]
     Indication: FACTOR VIII DEFICIENCY
     Dates: start: 19830101
  11. PROFILATE [Suspect]
     Indication: FACTOR VIII DEFICIENCY
     Dates: start: 19840101
  12. PROFILATE [Suspect]
     Indication: FACTOR VIII DEFICIENCY
     Dates: start: 19850101
  13. PROFILATE [Suspect]
     Indication: FACTOR VIII DEFICIENCY
     Dates: start: 19860101
  14. PROFILATE [Suspect]
     Indication: FACTOR VIII DEFICIENCY
     Dates: start: 19870101
  15. PROFILATE [Suspect]
     Indication: FACTOR VIII DEFICIENCY
     Dates: start: 19880101

REACTIONS (1)
  - HIV INFECTION [None]
